FAERS Safety Report 8047115-7 (Version None)
Quarter: 2012Q1

REPORT INFORMATION
  Report Type: 
  Country: None (occurrence: None)
  Receive Date: 20120116
  Receipt Date: 20120109
  Transmission Date: 20120608
  Serious: Yes (Other)
  Sender: FDA-Public Use
  Company Number: CA-BRISTOL-MYERS SQUIBB COMPANY-16249286

PATIENT
  Sex: Male

DRUGS (1)
  1. AVAPRO [Suspect]
     Dosage: STOPPED AVAPRO 150MG STARTED 75MG

REACTIONS (3)
  - LOSS OF CONSCIOUSNESS [None]
  - LOCALISED INFECTION [None]
  - ROAD TRAFFIC ACCIDENT [None]
